FAERS Safety Report 22244619 (Version 2)
Quarter: 2023Q2

REPORT INFORMATION
  Report Type: Spontaneous
  Country: CH (occurrence: CH)
  Receive Date: 20230424
  Receipt Date: 20230508
  Transmission Date: 20230722
  Serious: Yes (Hospitalization, Other)
  Sender: FDA-Public Use
  Company Number: CH-ORGANON-O2304CHE000368

PATIENT
  Age: 23 Year
  Sex: Female
  Weight: 60 kg

DRUGS (2)
  1. ETONOGESTREL [Suspect]
     Active Substance: ETONOGESTREL
     Dosage: 1 IMPLANT; UPPER LEFT ARM
     Dates: start: 20200203, end: 20230417
  2. ETONOGESTREL [Concomitant]
     Active Substance: ETONOGESTREL
     Dosage: 1 IMPLANT
     Route: 059
     Dates: start: 2017, end: 20200203

REACTIONS (8)
  - Device dislocation [Recovered/Resolved]
  - Complication of device removal [Recovered/Resolved]
  - Device issue [Recovered/Resolved]
  - Device deployment issue [Recovered/Resolved]
  - Complication associated with device [Recovered/Resolved]
  - Device placement issue [Recovered/Resolved]
  - Product prescribing issue [Unknown]
  - Incorrect product administration duration [Unknown]

NARRATIVE: CASE EVENT DATE: 20200203
